FAERS Safety Report 25666202 (Version 3)
Quarter: 2025Q4

REPORT INFORMATION
  Report Type: Spontaneous
  Country: GT (occurrence: GT)
  Receive Date: 20250811
  Receipt Date: 20251014
  Transmission Date: 20260118
  Serious: Yes (Life-Threatening, Hospitalization, Other)
  Sender: BRISTOL-MYERS SQUIBB COMPANY
  Company Number: GT-BRISTOL-MYERS SQUIBB COMPANY-2025-097086

PATIENT
  Age: 60 Year
  Sex: Male

DRUGS (2)
  1. OPDIVO [Suspect]
     Active Substance: NIVOLUMAB
     Indication: Acral lentiginous melanoma
     Dosage: 10MG/ML 100 MG X 1 INY X 1 FCO
     Dates: start: 20250506, end: 20250624
  2. YERVOY [Suspect]
     Active Substance: IPILIMUMAB
     Indication: Acral lentiginous melanoma
     Dosage: 50MG/10ML 50 MG X 1 INY X 1 FCO
     Dates: start: 20250506, end: 20250624

REACTIONS (5)
  - Sjogren^s syndrome [Unknown]
  - Rash [Unknown]
  - Hyperthyroidism [Unknown]
  - Pneumonia bacterial [Recovered/Resolved]
  - Hypophysitis [Unknown]

NARRATIVE: CASE EVENT DATE: 20250624
